FAERS Safety Report 7720287-7 (Version None)
Quarter: 2011Q3

REPORT INFORMATION
  Report Type: 
  Country: None (occurrence: None)
  Receive Date: 20110831
  Receipt Date: 20110817
  Transmission Date: 20111222
  Serious: Yes (Life-Threatening)
  Sender: FDA-Public Use
  Company Number: AT-UCBSA-040120

PATIENT
  Age: 19 Year
  Sex: Male

DRUGS (3)
  1. PRAZOPANT REFLUX CONTROL 20 [Concomitant]
     Indication: PROPHYLAXIS
     Dosage: DOSE : 40 MG
     Route: 042
     Dates: start: 20110704
  2. HEPARIN IMMUNO [Concomitant]
     Indication: INTRACRANIAL VENOUS SINUS THROMBOSIS
     Route: 042
     Dates: start: 20110704, end: 20110706
  3. KEPPRA [Suspect]
     Indication: PARTIAL SEIZURES
     Dosage: DOSE : 1000 MG
     Route: 042
     Dates: start: 20110704, end: 20110705

REACTIONS (1)
  - THROMBOCYTOPENIA [None]
